FAERS Safety Report 16289021 (Version 1)
Quarter: 2019Q2

REPORT INFORMATION
  Report Type: Spontaneous
  Country: DE (occurrence: DE)
  Receive Date: 20190509
  Receipt Date: 20190509
  Transmission Date: 20190711
  Serious: Yes (Other)
  Sender: FDA-Public Use
  Company Number: DE-CIPLA LTD.-2019DE03039

PATIENT

DRUGS (10)
  1. MONTELUKAST [Suspect]
     Active Substance: MONTELUKAST SODIUM
     Indication: STATUS ASTHMATICUS
     Dosage: 10 MILLIGRAM PER DAY
     Route: 048
  2. THEOPHYLLINE [Suspect]
     Active Substance: THEOPHYLLINE ANHYDROUS
     Indication: STATUS ASTHMATICUS
     Dosage: UNK, MONITORED BY DRUG LEVEL
     Route: 042
  3. ROCURONIUM [Concomitant]
     Active Substance: ROCURONIUM BROMIDE
     Indication: HYPOTONIA
     Dosage: UNK
     Route: 042
  4. SALBUTAMOL/IPRATROPIUM [Suspect]
     Active Substance: ALBUTEROL\IPRATROPIUM
     Indication: STATUS ASTHMATICUS
     Dosage: UNK, NEBULIZED, 6 TIMES DAILY
  5. MAGNESIUM [Concomitant]
     Active Substance: MAGNESIUM
     Indication: SUPPLEMENTATION THERAPY
     Dosage: 2 GRAM OVER 20 MINUTES
     Route: 042
  6. BUDESONIDE. [Suspect]
     Active Substance: BUDESONIDE
     Indication: STATUS ASTHMATICUS
     Dosage: 2 MILLIGRAM PER DAY, NEBULIZED
  7. ISOFLURANE. [Concomitant]
     Active Substance: ISOFLURANE
     Indication: ANAESTHESIA
     Dosage: UNK, VIA THE ANAESTHETIC CONSERVING DEVICE
     Route: 065
  8. PREDNISOLONE. [Suspect]
     Active Substance: PREDNISOLONE
     Indication: STATUS ASTHMATICUS
     Dosage: 2 MILLIGRAM/KILOGRAM DAILY
     Route: 042
  9. KETAMINE [Concomitant]
     Active Substance: KETAMINE
     Indication: SEDATION
     Dosage: 150 MILLIGRAM PER HOUR
     Route: 042
  10. TERBUTALINE [Suspect]
     Active Substance: TERBUTALINE
     Indication: STATUS ASTHMATICUS
     Dosage: 1 MILLIGRAM PER DAY
     Route: 058

REACTIONS (1)
  - Drug ineffective [Unknown]
